FAERS Safety Report 16284580 (Version 1)
Quarter: 2019Q2

REPORT INFORMATION
  Report Type: Spontaneous
  Country: US (occurrence: US)
  Receive Date: 20190508
  Receipt Date: 20190508
  Transmission Date: 20190711
  Serious: Yes (Other)
  Sender: FDA-Public Use
  Company Number: US-AMGEN-USASP2019069944

PATIENT
  Age: 3 Year
  Sex: Male

DRUGS (7)
  1. ROMIPLOSTIM [Suspect]
     Active Substance: ROMIPLOSTIM
     Dosage: 4 MICROGRAM/KILOGRAM, THREE DAYS APART
     Route: 058
  2. ROMIPLOSTIM [Suspect]
     Active Substance: ROMIPLOSTIM
     Indication: IMMUNE THROMBOCYTOPENIC PURPURA
     Dosage: 1 MICROGRAM/KILOGRAM
     Route: 058
  3. ROMIPLOSTIM [Suspect]
     Active Substance: ROMIPLOSTIM
     Dosage: 3 MICROGRAM/KILOGRAM, Q2WK
     Route: 058
  4. ETOPOSIDE. [Concomitant]
     Active Substance: ETOPOSIDE
     Dosage: UNK
  5. IVIGLOB EX [Concomitant]
     Active Substance: HUMAN IMMUNOGLOBULIN G
     Dosage: UNK
  6. IFOSFAMIDE. [Concomitant]
     Active Substance: IFOSFAMIDE
     Dosage: UNK
  7. CARBOPLATIN. [Concomitant]
     Active Substance: CARBOPLATIN
     Dosage: UNK

REACTIONS (3)
  - Thrombocytosis [Recovered/Resolved]
  - Off label use [Unknown]
  - Neuroblastoma recurrent [Recovered/Resolved]
